FAERS Safety Report 5214909-2 (Version None)
Quarter: 2007Q1

REPORT INFORMATION
  Report Type: 
  Country: None (occurrence: None)
  Receive Date: 20061108
  Receipt Date: 20060517
  Transmission Date: 20070707
  Serious: Yes (Other)
  Sender: FDA-Public Use
  Company Number: PHEH2006US06483

PATIENT
  Age: 73 Year
  Sex: Female

DRUGS (5)
  1. ESTRADERM [Suspect]
     Indication: MENOPAUSAL SYMPTOMS
  2. PREMARIN [Suspect]
     Indication: MENOPAUSAL SYMPTOMS
  3. PROVERA [Suspect]
     Indication: MENOPAUSAL SYMPTOMS
  4. PREMPRO [Suspect]
     Indication: MENOPAUSAL SYMPTOMS
  5. ESTRACE [Suspect]
     Indication: MENOPAUSAL SYMPTOMS

REACTIONS (6)
  - BIOPSY [None]
  - BREAST CANCER [None]
  - BREAST CANCER IN SITU [None]
  - CHEMOTHERAPY [None]
  - MASTECTOMY [None]
  - OESTROGEN RECEPTOR ASSAY POSITIVE [None]
